FAERS Safety Report 8098385-0 (Version None)
Quarter: 2012Q1

REPORT INFORMATION
  Report Type: 
  Country: None (occurrence: None)
  Receive Date: 20120131
  Receipt Date: 20120117
  Transmission Date: 20120608
  Serious: Yes (Other)
  Sender: FDA-Public Use
  Company Number: CA-JNJFOC-20120109247

PATIENT
  Sex: Female

DRUGS (1)
  1. BENYLIN [Suspect]
     Indication: NASOPHARYNGITIS
     Route: 048

REACTIONS (6)
  - NAUSEA [None]
  - HYPOAESTHESIA [None]
  - DIARRHOEA [None]
  - DIZZINESS [None]
  - INSOMNIA [None]
  - LOSS OF CONSCIOUSNESS [None]
